FAERS Safety Report 18371567 (Version 3)
Quarter: 2020Q4

REPORT INFORMATION
  Report Type: Spontaneous
  Country: JP (occurrence: JP)
  Receive Date: 20201012
  Receipt Date: 20201216
  Transmission Date: 20210114
  Serious: No
  Sender: FDA-Public Use
  Company Number: JP-GLAXOSMITHKLINE-JP2020167083

PATIENT
  Age: 60 Year
  Sex: Male

DRUGS (12)
  1. FLUTIDE [FLUTICASONE PROPIONATE] [Suspect]
     Active Substance: FLUTICASONE PROPIONATE
     Dosage: 50 UG, BID
     Route: 055
     Dates: start: 20200916
  2. FRANDOL TAPE [Concomitant]
     Active Substance: ISOSORBIDE DINITRATE
     Indication: VASCULAR OCCLUSION
     Dosage: UNK, QD
     Route: 050
     Dates: start: 20180208, end: 20180328
  3. MEPTIN AIR [Concomitant]
     Active Substance: PROCATEROL HYDROCHLORIDE
     Indication: BRONCHITIS
     Dosage: 2-4 TIMES DAILY AT THE TIME OF ATTACK
     Route: 055
     Dates: start: 20080805
  4. SIGMART [Concomitant]
     Active Substance: NICORANDIL
     Indication: ARRHYTHMIA
     Dosage: 1 DF, TID
     Route: 048
     Dates: start: 2018
  5. RIZE (JAPAN) [Concomitant]
     Indication: INSOMNIA
     Dosage: 1 DF, PRN AT THE TIME OF ATTACK
     Dates: start: 20200122
  6. RIZE (JAPAN) [Concomitant]
     Indication: BLOOD PRESSURE INCREASED
  7. SIGMART [Concomitant]
     Active Substance: NICORANDIL
     Dosage: 1 DF, TID AFTER EVERY MEAL
     Route: 048
     Dates: start: 20180328
  8. RELVAR ELLIPTA [Suspect]
     Active Substance: FLUTICASONE FUROATE\VILANTEROL TRIFENATATE
     Indication: COUGH
     Dosage: 200 ?G, QD
     Route: 055
     Dates: start: 20190529, end: 20190629
  9. MONTELUKAST SODIUM. [Concomitant]
     Active Substance: MONTELUKAST SODIUM
     Indication: COUGH
     Dosage: UNK, QD BEFORE BEDTIME
     Route: 048
     Dates: start: 20190227, end: 20190529
  10. FLUTIDE [FLUTICASONE PROPIONATE] [Suspect]
     Active Substance: FLUTICASONE PROPIONATE
     Indication: CHEST PAIN
     Dosage: 50 ?G, BID
     Route: 055
     Dates: start: 20191223, end: 20200819
  11. NORVASC TABLETS [Concomitant]
     Indication: ARRHYTHMIA
     Dosage: 1 DF, QD AFTER BREAKFAST
     Route: 048
     Dates: start: 20090929
  12. TAKELDA COMBINATION TABLETS [Concomitant]
     Active Substance: ASPIRIN\LANSOPRAZOLE
     Indication: VASCULAR OCCLUSION
     Dosage: 1 DF, QD AFTER BREAKFAST
     Route: 048

REACTIONS (3)
  - Product use in unapproved indication [Unknown]
  - Dysphonia [Recovered/Resolved]
  - Dysphonia [Recovering/Resolving]

NARRATIVE: CASE EVENT DATE: 2019
